FAERS Safety Report 8292354-3 (Version None)
Quarter: 2012Q2

REPORT INFORMATION
  Report Type: 
  Country: None (occurrence: None)
  Receive Date: 20120417
  Receipt Date: 20110925
  Transmission Date: 20120825
  Serious: No
  Sender: FDA-Public Use
  Company Number: US-BAUSCH-2011BL006457

PATIENT
  Age: 72 Year
  Sex: Male

DRUGS (3)
  1. OMEPRAZOLE [Concomitant]
     Indication: GASTROOESOPHAGEAL REFLUX DISEASE
     Route: 048
  2. FLUNISOLIDE [Suspect]
     Indication: RHINITIS
     Route: 045
     Dates: start: 19960101
  3. SALINE NASAL SPRAY [Concomitant]
     Route: 045

REACTIONS (3)
  - VOMITING [None]
  - RETCHING [None]
  - NAUSEA [None]
